FAERS Safety Report 5371885-X (Version None)
Quarter: 2007Q2

REPORT INFORMATION
  Report Type: 
  Country: None (occurrence: None)
  Receive Date: 20070627
  Receipt Date: 20070618
  Transmission Date: 20071010
  Serious: Yes (Other)
  Sender: FDA-Public Use
  Company Number: US-JNJFOC-20070504750

PATIENT
  Age: 16 Year
  Sex: Female

DRUGS (4)
  1. RISPERDAL [Suspect]
     Indication: BIPOLAR DISORDER
     Dosage: FOR 6 MONTHS
     Route: 048
  2. WELLBUTRIN [Concomitant]
  3. LITHIUM CARBONATE [Concomitant]
  4. CONCERTA [Concomitant]

REACTIONS (1)
  - INTRAOCULAR PRESSURE INCREASED [None]
